FAERS Safety Report 9302568 (Version 4)
Quarter: 2014Q1

REPORT INFORMATION
  Report Type: Spontaneous
  Country: GB (occurrence: None)
  Receive Date: 20130517
  Receipt Date: 20140123
  Transmission Date: 20141002
  Serious: Yes (Other)
  Sender: FDA-Public Use
  Company Number: AUR-APL-2013-04059

PATIENT
  Age: 66 Year
  Sex: Female

DRUGS (2)
  1. RAMIPRIL (RAMIPRIL) [Suspect]
     Indication: HYPERTENSION
  2. LEVOTHYROXINE (LEVOTHYROXINE) [Concomitant]

REACTIONS (10)
  - Blood pressure fluctuation [None]
  - Mouth ulceration [None]
  - Confusional state [None]
  - Tremor [None]
  - Rash macular [None]
  - Synovial cyst [None]
  - Rash [None]
  - Skin reaction [None]
  - Drug prescribing error [None]
  - Incorrect dose administered [None]
